FAERS Safety Report 20960467 (Version 1)
Quarter: 2022Q2

REPORT INFORMATION
  Report Type: Spontaneous
  Country: IE (occurrence: IE)
  Receive Date: 20220615
  Receipt Date: 20220615
  Transmission Date: 20220720
  Serious: Yes (Other)
  Sender: FDA-Public Use
  Company Number: IE-SUN PHARMACEUTICAL INDUSTRIES LTD-2022R1-340220

PATIENT
  Age: 30 Year
  Sex: Female

DRUGS (3)
  1. CLARITHROMYCIN [Suspect]
     Active Substance: CLARITHROMYCIN
     Indication: Product used for unknown indication
     Dosage: 500 MILLIGRAM, 12 HOURLY
     Route: 065
  2. CEFUROXIME [Suspect]
     Active Substance: CEFUROXIME
     Indication: Product used for unknown indication
     Dosage: 1.5 GRAM, 8 HOURLY
     Route: 042
  3. BETAMETHASONE [Suspect]
     Active Substance: BETAMETHASONE
     Indication: Steroid therapy
     Dosage: 12 MILLIGRAM
     Route: 030

REACTIONS (3)
  - Exposure during pregnancy [Unknown]
  - Tachycardia foetal [Unknown]
  - Premature delivery [Unknown]
